FAERS Safety Report 8444301 (Version 4)
Quarter: 2013Q2

REPORT INFORMATION
  Report Type: Spontaneous
  Country: US (occurrence: None)
  Receive Date: 20120228
  Receipt Date: 20130621
  Transmission Date: 20140414
  Serious: Yes (Hospitalization)
  Sender: FDA-Public Use
  Company Number: 2012-0933

PATIENT
  Age: 15 Year
  Sex: Male

DRUGS (2)
  1. INCRELEX [Suspect]
     Indication: PRODUCT USED FOR UNKNOWN INDICATION
  2. NORDITROPIN [Concomitant]

REACTIONS (1)
  - ANOREXIA NERVOSA [None]
